FAERS Safety Report 25387931 (Version 1)
Quarter: 2025Q2

REPORT INFORMATION
  Report Type: Spontaneous
  Country: US (occurrence: US)
  Receive Date: 20250603
  Receipt Date: 20250603
  Transmission Date: 20250717
  Serious: No
  Sender: GLAXOSMITHKLINE
  Company Number: US-GSK-US2025068076

PATIENT
  Age: 66 Year
  Sex: Female

DRUGS (2)
  1. NUCALA [Suspect]
     Active Substance: MEPOLIZUMAB
     Indication: Asthma
     Dosage: 100 MG, Q4W
     Route: 058
     Dates: start: 20250512
  2. ALBUTEROL [Concomitant]
     Active Substance: ALBUTEROL
     Indication: Asthma

REACTIONS (5)
  - Chest discomfort [Unknown]
  - Cough [Unknown]
  - Injection site pain [Unknown]
  - Burning sensation [Unknown]
  - Rhinorrhoea [Unknown]

NARRATIVE: CASE EVENT DATE: 20250512
